FAERS Safety Report 23430478 (Version 4)
Quarter: 2024Q3

REPORT INFORMATION
  Report Type: Spontaneous
  Country: US (occurrence: US)
  Receive Date: 20240123
  Receipt Date: 20240802
  Transmission Date: 20241017
  Serious: No
  Sender: UNITED THERAPEUTICS
  Company Number: US-UNITED THERAPEUTICS-UNT-2024-001423

PATIENT
  Sex: Female

DRUGS (3)
  1. TYVASO [Suspect]
     Active Substance: TREPROSTINIL
     Indication: Pulmonary arterial hypertension
     Dosage: 102 ?G, QID
  2. TYVASO [Suspect]
     Active Substance: TREPROSTINIL
     Dosage: UNK
  3. AMBRISENTAN [Concomitant]
     Active Substance: AMBRISENTAN
     Indication: Product used for unknown indication
     Dosage: UNK

REACTIONS (8)
  - Blood iron decreased [Recovering/Resolving]
  - Fatigue [Unknown]
  - Headache [Recovering/Resolving]
  - Nausea [Recovering/Resolving]
  - Dyspnoea exertional [Recovering/Resolving]
  - Somnolence [Unknown]
  - Product dose omission issue [Not Recovered/Not Resolved]
  - Off label use [Unknown]
